FAERS Safety Report 8054123-9 (Version None)
Quarter: 2012Q1

REPORT INFORMATION
  Report Type: 
  Country: None (occurrence: None)
  Receive Date: 20120118
  Receipt Date: 20120112
  Transmission Date: 20120608
  Serious: Yes (Other)
  Sender: FDA-Public Use
  Company Number: US-CELGENEUS-163-21880-12011279

PATIENT
  Age: 58 Year
  Sex: Male
  Weight: 83.1 kg

DRUGS (8)
  1. REVLIMID [Suspect]
     Dosage: 20 MILLIGRAM
     Route: 048
     Dates: start: 20100628, end: 20100711
  2. DOCETAXEL [Suspect]
     Dosage: 75 MILLIGRAM/SQ. METER
     Route: 041
     Dates: start: 20100628, end: 20100628
  3. BEVACIZUMAB [Suspect]
     Dosage: 15 MILLIGRAM/KILOGRAM
     Route: 041
     Dates: start: 20091019
  4. PREDNISONE [Suspect]
     Dosage: 5 MILLIGRAM
     Route: 048
     Dates: start: 20100628, end: 20100718
  5. DOCETAXEL [Suspect]
     Dosage: 75 MILLIGRAM/SQ. METER
     Route: 041
     Dates: start: 20091019
  6. REVLIMID [Suspect]
     Dosage: 20 MILLIGRAM
     Route: 048
     Dates: start: 20091019
  7. BEVACIZUMAB [Suspect]
     Dosage: 15 MILLIGRAM/KILOGRAM
     Route: 041
     Dates: start: 20100628, end: 20100628
  8. PREDNISONE [Suspect]
     Dosage: 5 MILLIGRAM
     Route: 048
     Dates: start: 20091019

REACTIONS (1)
  - STOMATITIS [None]
